FAERS Safety Report 4445477-0 (Version None)
Quarter: 2004Q2

REPORT INFORMATION
  Report Type: 
  Country: None (occurrence: None)
  Receive Date: 20040525
  Receipt Date: 20030804
  Transmission Date: 20050107
  Serious: Yes (Hospitalization)
  Sender: FDA-Public Use
  Company Number: 230180

PATIENT
  Age: 11 Year
  Sex: Male
  Weight: 28 kg

DRUGS (18)
  1. NOVOSEVEN [Suspect]
     Indication: HAEMOPHILIA A WITH ANTI FACTOR VIII
     Dosage: SEE IMAGE
     Route: 042
     Dates: start: 20030603, end: 20030604
  2. NOVOSEVEN [Suspect]
     Indication: HAEMOPHILIA A WITH ANTI FACTOR VIII
     Dosage: SEE IMAGE
     Route: 042
     Dates: start: 20030604, end: 20030605
  3. NOVOSEVEN [Suspect]
     Indication: HAEMOPHILIA A WITH ANTI FACTOR VIII
     Dosage: SEE IMAGE
     Route: 042
     Dates: start: 20030605, end: 20030610
  4. NOVOSEVEN [Suspect]
     Indication: HAEMOPHILIA A WITH ANTI FACTOR VIII
     Dosage: SEE IMAGE
     Route: 042
     Dates: start: 20030610, end: 20030612
  5. NOVOSEVEN [Suspect]
     Indication: HAEMOPHILIA A WITH ANTI FACTOR VIII
     Dosage: SEE IMAGE
     Route: 042
     Dates: start: 20030612, end: 20030613
  6. NOVOSEVEN [Suspect]
     Indication: HAEMOPHILIA A WITH ANTI FACTOR VIII
     Dosage: SEE IMAGE
     Route: 042
     Dates: start: 20030613, end: 20030615
  7. NOVOSEVEN [Suspect]
     Indication: HAEMOPHILIA A WITH ANTI FACTOR VIII
     Dosage: SEE IMAGE
     Route: 042
     Dates: start: 20030615, end: 20030616
  8. NOVOSEVEN [Suspect]
     Indication: HAEMOPHILIA A WITH ANTI FACTOR VIII
     Dosage: SEE IMAGE
     Route: 042
     Dates: start: 20030616, end: 20030616
  9. NOVOSEVEN [Suspect]
     Indication: HAEMOPHILIA A WITH ANTI FACTOR VIII
     Dosage: SEE IMAGE
     Route: 042
     Dates: start: 20030616, end: 20030618
  10. NOVOSEVEN [Suspect]
     Indication: HAEMOPHILIA A WITH ANTI FACTOR VIII
     Dosage: SEE IMAGE
     Route: 042
     Dates: start: 20030618, end: 20030618
  11. NOVOSEVEN [Suspect]
     Indication: HAEMOPHILIA A WITH ANTI FACTOR VIII
     Dosage: SEE IMAGE
     Route: 042
     Dates: start: 20030626, end: 20030626
  12. NOVOSEVEN [Suspect]
     Indication: HAEMOPHILIA A WITH ANTI FACTOR VIII
     Dosage: SEE IMAGE
     Route: 042
     Dates: start: 20030626, end: 20030627
  13. NOVOSEVEN [Suspect]
     Indication: HAEMOPHILIA A WITH ANTI FACTOR VIII
     Dosage: SEE IMAGE
     Route: 042
     Dates: start: 20030627, end: 20030628
  14. NOVOSEVEN [Suspect]
     Indication: HAEMOPHILIA A WITH ANTI FACTOR VIII
     Dosage: SEE IMAGE
     Route: 042
     Dates: start: 20030628, end: 20030629
  15. NOVOSEVEN [Suspect]
     Indication: HAEMOPHILIA A WITH ANTI FACTOR VIII
     Dosage: SEE IMAGE
     Route: 042
     Dates: start: 20030629, end: 20030629
  16. NOVOSEVEN [Suspect]
     Indication: HAEMOPHILIA A WITH ANTI FACTOR VIII
     Dosage: SEE IMAGE
     Route: 042
     Dates: start: 20030629
  17. AMICAR (AMINOCRPROIC ACID) [Concomitant]
  18. RED BLOOD CELLS [Concomitant]

REACTIONS (1)
  - THERAPEUTIC RESPONSE DECREASED [None]
